FAERS Safety Report 7981171-7 (Version None)
Quarter: 2011Q4

REPORT INFORMATION
  Report Type: 
  Country: None (occurrence: None)
  Receive Date: 20111212
  Receipt Date: 20111128
  Transmission Date: 20120403
  Serious: Yes (Other)
  Sender: FDA-Public Use
  Company Number: 1000022460

PATIENT
  Age: 83 Year
  Sex: Female

DRUGS (9)
  1. ARICEPT [Concomitant]
  2. LIPITOR [Concomitant]
  3. BENIDIPINE (BENIDIPINE) (BENIDIPINE) [Concomitant]
  4. MEMANTINE HYDROCHLORIDE [Suspect]
     Indication: DEMENTIA ALZHEIMER'S TYPE
     Dosage: 15 MG (15 MG, 1 IN 1 D), ORAL
     Route: 048
     Dates: start: 20110625, end: 20110711
  5. AMLODIPINE [Concomitant]
  6. THYRADIN (LEVOTHYROXINE) (LEVOTHYROXINE) [Concomitant]
  7. YOKU-KAN-SAN (HERBAL EXTRACT NOS) (HERBAL EXTRACT NOS) [Concomitant]
  8. MEMANTINE HYDROCHLORIDE [Suspect]
     Indication: DEMENTIA ALZHEIMER'S TYPE
     Dosage: 5 MG (5 MG, 1 IN 1 D), ORAL, 10 MG (10 MG, 1 IN 1 D), ORAL
     Route: 048
     Dates: start: 20110611, end: 20110617
  9. EVISTA [Concomitant]

REACTIONS (3)
  - CONFUSIONAL STATE [None]
  - MALAISE [None]
  - SOMNOLENCE [None]
